FAERS Safety Report 13562128 (Version 1)
Quarter: 2017Q2

REPORT INFORMATION
  Report Type: Spontaneous
  Country: US (occurrence: US)
  Receive Date: 20170519
  Receipt Date: 20170519
  Transmission Date: 20170830
  Serious: No
  Sender: FDA-Public Use
  Company Number: US-TEVA-769419ACC

PATIENT
  Sex: Female

DRUGS (6)
  1. CYCLOBENZAPRINE. [Concomitant]
     Active Substance: CYCLOBENZAPRINE
  2. HYDROCODONE [Concomitant]
     Active Substance: HYDROCODONE
  3. VITAMIN B12 [Concomitant]
     Active Substance: CYANOCOBALAMIN
  4. VITAMIN D3 [Concomitant]
     Active Substance: CHOLECALCIFEROL
  5. COPAXONE [Suspect]
     Active Substance: GLATIRAMER ACETATE
     Indication: MULTIPLE SCLEROSIS
     Dosage: 20 MILLIGRAM/MILLILITERS DAILY;
     Route: 058
     Dates: start: 20170413
  6. LORATADINE. [Concomitant]
     Active Substance: LORATADINE

REACTIONS (2)
  - Urticaria [Not Recovered/Not Resolved]
  - Vomiting [Not Recovered/Not Resolved]
